FAERS Safety Report 21419361 (Version 1)
Quarter: 2022Q4

REPORT INFORMATION
  Report Type: Spontaneous
  Country: FR (occurrence: FR)
  Receive Date: 20221006
  Receipt Date: 20221006
  Transmission Date: 20230113
  Serious: Yes (Hospitalization)
  Sender: FDA-Public Use
  Company Number: None

PATIENT
  Age: 82 Year
  Sex: Male
  Weight: 99.3 kg

DRUGS (2)
  1. LEVOFLOXACIN [Suspect]
     Active Substance: LEVOFLOXACIN
     Indication: Postoperative wound infection
     Dosage: 500 MG, Q8H
     Route: 048
     Dates: start: 20220827, end: 20220901
  2. RIFAMPIN [Suspect]
     Active Substance: RIFAMPIN
     Indication: Postoperative wound infection
     Dosage: 900 MG, Q12H
     Route: 048
     Dates: start: 20220819, end: 20220901

REACTIONS (2)
  - Hyperbilirubinaemia [Recovering/Resolving]
  - Liver injury [Recovered/Resolved]

NARRATIVE: CASE EVENT DATE: 20220801
